FAERS Safety Report 10226554 (Version 1)
Quarter: 2014Q2

REPORT INFORMATION
  Report Type: Spontaneous
  Country: US (occurrence: US)
  Receive Date: 20140609
  Receipt Date: 20140609
  Transmission Date: 20141212
  Serious: No
  Sender: FDA-Public Use
  Company Number: US-AMGEN INC.-USASP2013083903

PATIENT
  Age: 64 Year
  Sex: Female

DRUGS (5)
  1. PROCRIT [Suspect]
     Indication: RENAL FAILURE CHRONIC
     Dosage: UNK UNK, 3 TIMES/WK
     Route: 042
  2. ZESTRIL [Concomitant]
     Dosage: UNK
     Route: 048
  3. BABY ASPIRIN [Concomitant]
     Dosage: 81 MG, UNK
     Route: 048
  4. VITAMIN D                          /00107901/ [Concomitant]
     Dosage: UNK
  5. HECTOROL [Concomitant]
     Dosage: UNK

REACTIONS (3)
  - Swelling face [Unknown]
  - Pruritus [Unknown]
  - Rash [Unknown]
